FAERS Safety Report 19463873 (Version 1)
Quarter: 2021Q2

REPORT INFORMATION
  Report Type: Spontaneous
  Country: US (occurrence: US)
  Receive Date: 20210625
  Receipt Date: 20210625
  Transmission Date: 20210717
  Serious: No
  Sender: FDA-Public Use
  Company Number: US-SA-2021SA201901

PATIENT
  Age: 60 Year
  Sex: Female

DRUGS (1)
  1. ALLEGRA D?12 HOUR [Suspect]
     Active Substance: FEXOFENADINE HYDROCHLORIDE\PSEUDOEPHEDRINE HYDROCHLORIDE
     Indication: HYPERSENSITIVITY
     Dosage: UNK, (DRUG STRUCTURE DOSAGE : 60MG+120 MG DRUG INTERVAL DOSAGE : UNKNOWN)
     Dates: start: 20210523

REACTIONS (3)
  - Ocular hyperaemia [Recovering/Resolving]
  - Eye infection [Recovering/Resolving]
  - Eye swelling [Recovering/Resolving]

NARRATIVE: CASE EVENT DATE: 20210523
